FAERS Safety Report 12755971 (Version 1)
Quarter: 2016Q3

REPORT INFORMATION
  Report Type: Report from Study
  Country: US (occurrence: US)
  Receive Date: 20160916
  Receipt Date: 20160916
  Transmission Date: 20161109
  Serious: Yes (Other)
  Sender: FDA-Public Use
  Company Number: US-ACTELION-A-US2016-141063

PATIENT
  Age: 60 Year
  Sex: Female

DRUGS (1)
  1. OPSUMIT [Suspect]
     Active Substance: MACITENTAN
     Indication: PULMONARY ARTERIAL HYPERTENSION
     Dosage: 10 MG, UNK
     Route: 048
     Dates: start: 20160803, end: 20160823

REACTIONS (6)
  - Bursitis [Unknown]
  - Liver disorder [Unknown]
  - Pruritus [Unknown]
  - Abdominal pain upper [Unknown]
  - Transplant evaluation [Unknown]
  - Headache [Unknown]
